FAERS Safety Report 5714544-3 (Version None)
Quarter: 2008Q2

REPORT INFORMATION
  Report Type: 
  Country: None (occurrence: None)
  Receive Date: 20080423
  Receipt Date: 20080415
  Transmission Date: 20081010
  Serious: Yes (Hospitalization)
  Sender: FDA-Public Use
  Company Number: GR-WYE-H03653508

PATIENT
  Age: 78 Year
  Sex: Male

DRUGS (2)
  1. TAZOCIN [Suspect]
     Indication: BILIARY SEPSIS
  2. URSODIOL [Concomitant]

REACTIONS (1)
  - ACUTE FEBRILE NEUTROPHILIC DERMATOSIS [None]
